FAERS Safety Report 11362498 (Version 2)
Quarter: 2015Q3

REPORT INFORMATION
  Report Type: Spontaneous
  Country: US (occurrence: US)
  Receive Date: 20150810
  Receipt Date: 20150820
  Transmission Date: 20151125
  Serious: No
  Sender: FDA-Public Use
  Company Number: US-PFIZER INC-2015261625

PATIENT
  Sex: Female

DRUGS (11)
  1. ADALIMUMAB [Suspect]
     Active Substance: ADALIMUMAB
     Dosage: UNK
  2. CALCITONIN [Suspect]
     Active Substance: CALCITONIN
     Dosage: UNK
  3. ERYTHROMYCIN. [Suspect]
     Active Substance: ERYTHROMYCIN
     Dosage: UNK
  4. NALIDIXIC ACID [Suspect]
     Active Substance: NALIDIXIC ACID
     Dosage: UNK
  5. PREGABALIN. [Suspect]
     Active Substance: PREGABALIN
     Dosage: UNK
  6. METOLAZONE. [Suspect]
     Active Substance: METOLAZONE
     Dosage: UNK
  7. SULFABENZAMIDE. [Suspect]
     Active Substance: SULFABENZAMIDE
     Dosage: UNK
  8. ETANERCEPT [Suspect]
     Active Substance: ETANERCEPT
     Dosage: UNK
  9. CYCLIZINE [Suspect]
     Active Substance: CYCLIZINE
     Dosage: UNK
  10. ROFECOXIB [Suspect]
     Active Substance: ROFECOXIB
     Dosage: UNK
  11. TETANUS TOXOID [Suspect]
     Active Substance: CLOSTRIDIUM TETANI TOXOID ANTIGEN (FORMALDEHYDE INACTIVATED)
     Dosage: UNK

REACTIONS (1)
  - Drug hypersensitivity [Unknown]
